FAERS Safety Report 7377775-5 (Version None)
Quarter: 2011Q1

REPORT INFORMATION
  Report Type: 
  Country: None (occurrence: None)
  Receive Date: 20110328
  Receipt Date: 20110325
  Transmission Date: 20110831
  Serious: Yes (Hospitalization)
  Sender: FDA-Public Use
  Company Number: IT-TEVA-273141ISR

PATIENT
  Sex: Female

DRUGS (13)
  1. DEXAMETHASONE [Suspect]
     Dates: start: 20110207, end: 20110228
  2. LENALIDOMIDE [Suspect]
     Route: 048
     Dates: start: 20110217
  3. LENALIDOMIDE [Suspect]
     Route: 048
     Dates: start: 20100726
  4. LENALIDOMIDE [Suspect]
     Indication: MULTIPLE MYELOMA
     Route: 048
     Dates: start: 20110307
  5. LENALIDOMIDE [Suspect]
     Route: 048
     Dates: start: 20110207, end: 20110215
  6. CLONAZEPAM [Concomitant]
     Indication: ANXIETY
     Route: 048
     Dates: start: 20101124
  7. OMEPRAZOLE [Concomitant]
     Indication: GASTRIC DISORDER
     Route: 048
     Dates: start: 20100629
  8. IBUPROFEN [Concomitant]
     Indication: PAIN
     Route: 048
     Dates: start: 20100906
  9. FENTANYL [Concomitant]
     Indication: PAIN
     Route: 062
     Dates: start: 20101124
  10. DEXAMETHASONE [Suspect]
     Indication: MULTIPLE MYELOMA
     Dates: start: 20110307
  11. DEXAMETHASONE [Suspect]
     Dates: start: 20100726
  12. DICLOFENAC [Concomitant]
     Indication: PAIN
     Route: 030
     Dates: start: 20101005
  13. CITALOPRAM HYDROBROMIDE [Concomitant]
     Indication: DEPRESSION
     Route: 048
     Dates: start: 20101124

REACTIONS (2)
  - PYREXIA [None]
  - LOBAR PNEUMONIA [None]
